FAERS Safety Report 7717693-3 (Version None)
Quarter: 2011Q3

REPORT INFORMATION
  Report Type: 
  Country: None (occurrence: None)
  Receive Date: 20110830
  Receipt Date: 20110821
  Transmission Date: 20111222
  Serious: Yes (Hospitalization)
  Sender: FDA-Public Use
  Company Number: US-US-EMD SERONO, INC.-7078552

PATIENT
  Sex: Male

DRUGS (2)
  1. INSULIN [Concomitant]
  2. REBIF [Suspect]
     Indication: MULTIPLE SCLEROSIS
     Route: 058
     Dates: start: 20110602

REACTIONS (4)
  - MYOCARDIAL INFARCTION [None]
  - INJECTION SITE ERYTHEMA [None]
  - FALL [None]
  - INJECTION SITE PAIN [None]
